FAERS Safety Report 24299554 (Version 1)
Quarter: 2024Q3

REPORT INFORMATION
  Report Type: Spontaneous
  Country: PE (occurrence: PE)
  Receive Date: 20240909
  Receipt Date: 20240909
  Transmission Date: 20241017
  Serious: Yes (Life-Threatening, Hospitalization, Other)
  Sender: RANBAXY
  Company Number: PE-SUN PHARMACEUTICAL INDUSTRIES LTD-2024R1-466724

PATIENT
  Sex: Male

DRUGS (4)
  1. AMLODIPINE [Suspect]
     Active Substance: AMLODIPINE BESYLATE
     Indication: Hypercalcaemia
     Dosage: 2.5 MILLIGRAM, BID
     Route: 048
  2. SODIUM CHLORIDE [Concomitant]
     Active Substance: SODIUM CHLORIDE
     Indication: Hypercalcaemia
     Dosage: 1800 MILLILITER, DAILY
     Route: 042
  3. FUROSEMIDE [Concomitant]
     Active Substance: FUROSEMIDE
     Indication: Hypercalcaemia
     Dosage: 1 MILLIGRAM/KILOGRAM, QID
     Route: 042
  4. METHYLPREDNISOLONE [Concomitant]
     Active Substance: METHYLPREDNISOLONE
     Indication: Hypercalcaemia
     Dosage: 2 MILLIGRAM/KILOGRAM, DAILY
     Route: 042

REACTIONS (1)
  - Therapy non-responder [Unknown]
